FAERS Safety Report 9821055 (Version 2)
Quarter: 2014Q1

REPORT INFORMATION
  Report Type: Spontaneous
  Country: FR (occurrence: FR)
  Receive Date: 20140116
  Receipt Date: 20140116
  Transmission Date: 20141002
  Serious: Yes (Hospitalization, Other)
  Sender: FDA-Public Use
  Company Number: FR-PFIZER INC-2013240415

PATIENT
  Age: 81 Year
  Sex: Female

DRUGS (9)
  1. TRIATEC [Suspect]
     Indication: HYPERTENSION
     Dosage: UNK
     Route: 048
  2. PLAVIX [Suspect]
     Indication: ANGINA UNSTABLE
     Dosage: 1 DF, DAILY
     Route: 048
     Dates: start: 20130708, end: 20130729
  3. BRILIQUE [Suspect]
     Dosage: UNK
     Route: 048
  4. DIAMICRON [Suspect]
     Indication: TYPE 2 DIABETES MELLITUS
     Dosage: UNK
     Route: 048
  5. INEXIUM [Suspect]
     Indication: OESOPHAGEAL ULCER
     Dosage: UNK
     Route: 048
  6. KARDEGIC [Concomitant]
     Dosage: UNK
  7. LASILIX [Concomitant]
     Dosage: UNK
  8. LEVOTHYROX [Concomitant]
     Dosage: UNK
  9. ZOCOR [Concomitant]
     Dosage: UNK

REACTIONS (4)
  - Pancytopenia [Recovered/Resolved]
  - Oesophageal varices haemorrhage [Unknown]
  - Gastrointestinal haemorrhage [Unknown]
  - Anaemia [Unknown]
